FAERS Safety Report 4704013-1 (Version None)
Quarter: 2005Q2

REPORT INFORMATION
  Report Type: 
  Country: None (occurrence: None)
  Receive Date: 20050629
  Receipt Date: 20050614
  Transmission Date: 20051028
  Serious: No
  Sender: FDA-Public Use
  Company Number: 11553

PATIENT
  Age: 37 Year
  Sex: Male

DRUGS (3)
  1. METHOTREXATE [Suspect]
     Indication: BREAST CANCER
     Dosage: 480 MG/M2 TOTAL;
  2. FLUOROURACIL [Suspect]
     Indication: BREAST CANCER
     Dosage: 7200 MG/M2 TOTAL
  3. CYCLOPHOSPHAMIDE [Suspect]
     Indication: BREAST CANCER
     Dosage: 7200 MG/M2 TOTAL

REACTIONS (2)
  - ACUTE PROMYELOCYTIC LEUKAEMIA [None]
  - SEPTIC SHOCK [None]
